FAERS Safety Report 9800265 (Version 2)
Quarter: 2014Q2

REPORT INFORMATION
  Report Type: Report from Study
  Country: CN (occurrence: CN)
  Receive Date: 20140106
  Receipt Date: 20140401
  Transmission Date: 20141212
  Serious: Yes (Other)
  Sender: FDA-Public Use
  Company Number: CN-BAXTER-2013BAX053398

PATIENT
  Sex: 0

DRUGS (1)
  1. LOW CALCIUM PERITONEAL DIALYSIS SOLUTION ( LACTATE- G1.5%) [Suspect]
     Indication: PERITONEAL DIALYSIS
     Route: 033

REACTIONS (2)
  - Cardiac failure [Unknown]
  - Peritonitis [Unknown]
